FAERS Safety Report 8863370 (Version 1)
Quarter: 2012Q4

REPORT INFORMATION
  Report Type: 
  Country: CN (occurrence: CN)
  Receive Date: 20121025
  Receipt Date: 20121025
  Transmission Date: 20130627
  Serious: Yes (Other)
  Sender: FDA-Public Use
  Company Number: CN-GLAXOSMITHKLINE-B0840038A

PATIENT
  Age: 59 Year
  Sex: Female
  Weight: 38 kg

DRUGS (1)
  1. CEFUROXIME SODIUM [Suspect]
     Indication: PROPHYLAXIS
     Dosage: 1.5G Per day
     Route: 042
     Dates: start: 20110824, end: 20110825

REACTIONS (3)
  - Anaphylactoid reaction [Recovered/Resolved]
  - Tremor [Recovered/Resolved]
  - Chills [Recovered/Resolved]
